FAERS Safety Report 10244903 (Version 1)
Quarter: 2014Q2

REPORT INFORMATION
  Report Type: Spontaneous
  Country: US (occurrence: US)
  Receive Date: 20140618
  Receipt Date: 20140618
  Transmission Date: 20141212
  Serious: Yes (Other)
  Sender: FDA-Public Use
  Company Number: US-ABBVIE-14P-163-1246984-00

PATIENT
  Age: 39 Year
  Sex: Male

DRUGS (2)
  1. ANDROGEL [Suspect]
     Indication: HYPOGONADISM
     Dates: start: 200403
  2. ANDROGEL [Suspect]
     Dates: start: 200510, end: 201402

REACTIONS (9)
  - Pulmonary embolism [Unknown]
  - Physical disability [Unknown]
  - Emotional distress [Unknown]
  - Pain [Unknown]
  - Injury [Unknown]
  - Economic problem [Unknown]
  - Loss of employment [Unknown]
  - Anxiety [Unknown]
  - Deep vein thrombosis [Unknown]
